FAERS Safety Report 24053931 (Version 1)
Quarter: 2024Q3

REPORT INFORMATION
  Report Type: Spontaneous
  Country: GB (occurrence: GB)
  Receive Date: 20240705
  Receipt Date: 20240705
  Transmission Date: 20241017
  Serious: No
  Sender: ALKEM
  Company Number: None

PATIENT
  Age: 26 Year
  Sex: Male

DRUGS (5)
  1. SOLIFENACIN [Suspect]
     Active Substance: SOLIFENACIN
     Indication: Hyperhidrosis
     Dosage: 5 MILLIGRAM, QD (TABLET)
     Route: 065
     Dates: start: 20230623, end: 20230630
  2. SOLIFENACIN [Suspect]
     Active Substance: SOLIFENACIN
     Dosage: UNK
     Route: 065
     Dates: start: 20230623, end: 20230630
  3. AMLODIPINE [Concomitant]
     Active Substance: AMLODIPINE BESYLATE
     Indication: Hypertension
     Dosage: 5 MILLIGRAM
     Route: 065
     Dates: start: 20230616
  4. Anhydrol forte [Concomitant]
     Indication: Hyperhidrosis
     Dosage: UNK
     Route: 065
     Dates: start: 20230623
  5. RAMIPRIL [Concomitant]
     Active Substance: RAMIPRIL
     Indication: Hypertension
     Dosage: UNK
     Route: 065
     Dates: start: 20230602, end: 20230616

REACTIONS (1)
  - Muscular weakness [Recovered/Resolved]

NARRATIVE: CASE EVENT DATE: 20230623
